FAERS Safety Report 11895369 (Version 3)
Quarter: 2016Q2

REPORT INFORMATION
  Report Type: Spontaneous
  Country: JP (occurrence: JP)
  Receive Date: 20160107
  Receipt Date: 20160526
  Transmission Date: 20160815
  Serious: Yes (Other)
  Sender: FDA-Public Use
  Company Number: JP-PFIZER INC-2015471983

PATIENT
  Age: 76 Year
  Sex: Male

DRUGS (2)
  1. GENOTROPIN TC [Suspect]
     Active Substance: SOMATROPIN
     Dosage: 0.3 MG, DAILY
     Route: 058
  2. GENOTROPIN TC [Suspect]
     Active Substance: SOMATROPIN
     Dosage: UNK
     Route: 058

REACTIONS (18)
  - Osteoporosis [Unknown]
  - Infarction [Unknown]
  - Abasia [Unknown]
  - Tinea pedis [Unknown]
  - Memory impairment [Unknown]
  - Arthralgia [Unknown]
  - Skin haemorrhage [Unknown]
  - Rotator cuff syndrome [Unknown]
  - Capillary disorder [Unknown]
  - Weight decreased [Unknown]
  - Muscle tightness [Unknown]
  - Lacunar infarction [Unknown]
  - Condition aggravated [Unknown]
  - Blood growth hormone decreased [Unknown]
  - Weight increased [Unknown]
  - Incorrect product storage [Unknown]
  - Therapeutic response decreased [Unknown]
  - Musculoskeletal pain [Unknown]

NARRATIVE: CASE EVENT DATE: 2001
